FAERS Safety Report 8445525-7 (Version None)
Quarter: 2012Q2

REPORT INFORMATION
  Report Type: 
  Country: None (occurrence: None)
  Receive Date: 20120618
  Receipt Date: 20120607
  Transmission Date: 20120825
  Serious: Yes (Other)
  Sender: FDA-Public Use
  Company Number: US-MERCK-1204USA03943

PATIENT
  Age: 81 Year
  Sex: Female
  Weight: 58 kg

DRUGS (2)
  1. RECLAST [Concomitant]
     Indication: OSTEOPOROSIS
     Route: 042
     Dates: start: 20120417, end: 20120417
  2. FOSAMAX [Suspect]
     Route: 048

REACTIONS (2)
  - ABDOMINAL DISCOMFORT [None]
  - DEAFNESS [None]
